FAERS Safety Report 9695705 (Version 1)
Quarter: 2013Q4

REPORT INFORMATION
  Report Type: Spontaneous
  Country: US (occurrence: None)
  Receive Date: 20131118
  Receipt Date: 20131118
  Transmission Date: 20140711
  Serious: Yes (Hospitalization)
  Sender: FDA-Public Use
  Company Number: None

PATIENT
  Age: 43 Year
  Sex: Male
  Weight: 88 kg

DRUGS (1)
  1. AZOR [Suspect]
     Indication: BLOOD PRESSURE ABNORMAL
     Route: 048
     Dates: start: 20120620, end: 20130919

REACTIONS (8)
  - Diarrhoea [None]
  - Vomiting [None]
  - Food poisoning [None]
  - Dehydration [None]
  - Loss of consciousness [None]
  - Hypotension [None]
  - Weight decreased [None]
  - Drug ineffective [None]
